FAERS Safety Report 9537828 (Version 3)
Quarter: 2013Q3

REPORT INFORMATION
  Report Type: Spontaneous
  Country: US (occurrence: US)
  Receive Date: 20130919
  Receipt Date: 20130926
  Transmission Date: 20140515
  Serious: Yes (Death, Hospitalization, Other)
  Sender: FDA-Public Use
  Company Number: PHEH2013US019638

PATIENT
  Age: 71 Year
  Sex: Female
  Weight: 68.27 kg

DRUGS (12)
  1. GILENYA [Suspect]
     Dosage: 0.5 MG, QD
     Route: 048
  2. ZIOPTAN [Concomitant]
  3. PROTONIX [Concomitant]
     Dosage: 40 MG, QD
  4. AVAPRO [Concomitant]
     Dosage: 150 MG, BID
  5. HYDRALAZINE HCL [Concomitant]
     Dosage: 50 MG, PRN
  6. AZOPT [Concomitant]
     Dosage: 1 %, TID
  7. CIPRO [Concomitant]
  8. CLONIDINE HCL [Concomitant]
     Dosage: 0.1 MG, BID
     Route: 048
  9. NITROFURANTOIN MONOHYDRATE/MACROCRYSTALS [Concomitant]
     Dosage: 100 MG, UNK
     Route: 048
  10. ZOCOR [Concomitant]
     Dosage: 10 MG, UNK
     Route: 048
  11. LOPRESSOR [Concomitant]
     Dosage: 50 MG, BID
     Route: 048
  12. PROVIGIL//MODAFINIL [Concomitant]
     Dosage: 200 MG, QD
     Route: 048

REACTIONS (17)
  - Death [Fatal]
  - Agitation [Unknown]
  - Secondary progressive multiple sclerosis [Unknown]
  - Cerebral thrombosis [Unknown]
  - Cerebral infarction [Unknown]
  - Cerebral ischaemia [Unknown]
  - Cerebral haemorrhage [Unknown]
  - Central nervous system lesion [Unknown]
  - Hypokinesia [Unknown]
  - Hyperacusis [Unknown]
  - Lacrimation increased [Unknown]
  - Dysarthria [Unknown]
  - Dysphagia [Unknown]
  - White blood cells urine positive [Unknown]
  - Confusional state [Unknown]
  - Somnolence [Unknown]
  - Oedema peripheral [Unknown]
